FAERS Safety Report 16668385 (Version 1)
Quarter: 2019Q3

REPORT INFORMATION
  Report Type: Spontaneous
  Country: US (occurrence: US)
  Receive Date: 20190803
  Receipt Date: 20190803
  Transmission Date: 20191004
  Serious: Yes (Life-Threatening, Disabling)
  Sender: FDA-Public Use
  Company Number: None

PATIENT
  Age: 48 Year
  Sex: Female
  Weight: 99 kg

DRUGS (1)
  1. STELARA [Suspect]
     Active Substance: USTEKINUMAB
     Indication: PSORIATIC ARTHROPATHY

REACTIONS (6)
  - Urticaria [None]
  - Arthralgia [None]
  - Drug hypersensitivity [None]
  - Oral herpes [None]
  - Mouth swelling [None]
  - Pyrexia [None]

NARRATIVE: CASE EVENT DATE: 20190705
